FAERS Safety Report 6649378-9 (Version None)
Quarter: 2010Q1

REPORT INFORMATION
  Report Type: 
  Country: None (occurrence: None)
  Receive Date: 20100324
  Receipt Date: 20100313
  Transmission Date: 20100710
  Serious: Yes (Other)
  Sender: FDA-Public Use
  Company Number: US-PFIZER INC-2010032616

PATIENT
  Sex: Male

DRUGS (2)
  1. CHANTIX [Suspect]
     Dosage: UNK
     Dates: start: 20060101, end: 20060101
  2. CHANTIX [Suspect]
     Dosage: UNK
     Dates: start: 20080110

REACTIONS (3)
  - BLINDNESS [None]
  - MENTAL DISORDER [None]
  - SUICIDE ATTEMPT [None]
